FAERS Safety Report 5740069-5 (Version None)
Quarter: 2008Q2

REPORT INFORMATION
  Report Type: 
  Country: None (occurrence: None)
  Receive Date: 20080516
  Receipt Date: 20080514
  Transmission Date: 20081010
  Serious: Yes (Other)
  Sender: FDA-Public Use
  Company Number: PHHY2008BR07348

PATIENT
  Age: 44 Year
  Sex: Female
  Weight: 65 kg

DRUGS (2)
  1. PARLODEL [Suspect]
     Indication: BLOOD PROLACTIN ABNORMAL
     Dosage: 2.5 MG, QD
     Route: 048
  2. PARLODEL [Suspect]
     Dosage: 2.5 MG HALF TABLET A DAY

REACTIONS (11)
  - BALANCE DISORDER [None]
  - BLOOD PROLACTIN INCREASED [None]
  - DIZZINESS [None]
  - FATIGUE [None]
  - HYPOTENSION [None]
  - HYPOTHYROIDISM [None]
  - NAUSEA [None]
  - SOMNOLENCE [None]
  - SWELLING [None]
  - VISION BLURRED [None]
  - WEIGHT INCREASED [None]
